FAERS Safety Report 9155019 (Version 1)
Quarter: 2013Q1

REPORT INFORMATION
  Report Type: Spontaneous
  Country: US (occurrence: None)
  Receive Date: 20130307
  Receipt Date: 20130307
  Transmission Date: 20140127
  Serious: No
  Sender: FDA-Public Use
  Company Number: None

PATIENT
  Age: 38 Year
  Sex: Male

DRUGS (1)
  1. TUBERCULIN NOS [Suspect]
     Dosage: TUBERCULIN LOT NUMBER 293236 ON LEFT FOREARM
     Route: 058

REACTIONS (3)
  - Inflammation [None]
  - Pruritus [None]
  - Erythema [None]
